FAERS Safety Report 17572166 (Version 1)
Quarter: 2020Q1

REPORT INFORMATION
  Report Type: Spontaneous
  Country: US (occurrence: US)
  Receive Date: 20200317
  Receipt Date: 20200317
  Transmission Date: 20200409
  Serious: Yes (Hospitalization)
  Sender: FDA-Public Use
  Company Number: None

PATIENT
  Age: 49 Year
  Sex: Male
  Weight: 47.72 kg

DRUGS (16)
  1. NIVOLUMAB [Suspect]
     Active Substance: NIVOLUMAB
     Indication: SMALL CELL LUNG CANCER
     Route: 042
  2. RUCAPARIB [Suspect]
     Active Substance: RUCAPARIB
     Indication: SMALL CELL LUNG CANCER
     Route: 048
     Dates: start: 20190917, end: 20191015
  3. ATORVASTATIN [Concomitant]
     Active Substance: ATORVASTATIN
  4. PANTOPRAZOLE [Concomitant]
     Active Substance: PANTOPRAZOLE
  5. OXYCODONE [Concomitant]
     Active Substance: OXYCODONE
  6. ONDANSETRON [Concomitant]
     Active Substance: ONDANSETRON
  7. CELTRIZINE [Concomitant]
  8. MEMARTINE [Concomitant]
  9. SUCRALFATE. [Concomitant]
     Active Substance: SUCRALFATE
  10. METOPROLOL. [Concomitant]
     Active Substance: METOPROLOL
  11. RANITIDINE. [Concomitant]
     Active Substance: RANITIDINE
  12. PRASUGREL. [Concomitant]
     Active Substance: PRASUGREL
  13. LISINOPRIL. [Suspect]
     Active Substance: LISINOPRIL
  14. PROCHLORPERAZINE. [Concomitant]
     Active Substance: PROCHLORPERAZINE
  15. ASA [Concomitant]
     Active Substance: ASPIRIN
  16. CELEXA [Concomitant]
     Active Substance: CITALOPRAM HYDROBROMIDE

REACTIONS (12)
  - Tachycardia [None]
  - Colitis [None]
  - Nausea [None]
  - Vomiting [None]
  - Diarrhoea [None]
  - Asthenia [None]
  - Abdominal pain [None]
  - Hypophagia [None]
  - Clostridium test positive [None]
  - Pancytopenia [None]
  - Hypovolaemic shock [None]
  - Hypotension [None]

NARRATIVE: CASE EVENT DATE: 20191129
